FAERS Safety Report 8500034-1 (Version None)
Quarter: 2012Q2

REPORT INFORMATION
  Report Type: 
  Country: None (occurrence: None)
  Receive Date: 20120629
  Receipt Date: 20120619
  Transmission Date: 20120825
  Serious: Yes (Other)
  Sender: FDA-Public Use
  Company Number: 2012P1024429

PATIENT
  Age: 17 Year
  Sex: Male
  Weight: 81.6475 kg

DRUGS (3)
  1. KEPPRA [Concomitant]
  2. LAMOTRIGINE [Suspect]
     Indication: EPILEPSY
     Dosage: 200 MG;QID
     Dates: start: 20110901, end: 20111201
  3. DEPAKOTE [Concomitant]

REACTIONS (7)
  - GRAND MAL CONVULSION [None]
  - DIZZINESS [None]
  - PRODUCT SUBSTITUTION ISSUE [None]
  - EDUCATIONAL PROBLEM [None]
  - PRODUCT FORMULATION ISSUE [None]
  - PSYCHIATRIC SYMPTOM [None]
  - ANXIETY [None]
